FAERS Safety Report 15542450 (Version 1)
Quarter: 2018Q4

REPORT INFORMATION
  Report Type: Spontaneous
  Country: US (occurrence: US)
  Receive Date: 20181017
  Receipt Date: 20181017
  Transmission Date: 20190205
  Serious: No
  Sender: FDA-Public Use
  Company Number: None

PATIENT
  Age: 59 Year
  Sex: Male

DRUGS (8)
  1. AMPYRA [Concomitant]
     Active Substance: DALFAMPRIDINE
     Dates: start: 20180409
  2. OCREVUS [Suspect]
     Active Substance: OCRELIZUMAB
     Indication: MULTIPLE SCLEROSIS
     Dosage: ?          OTHER DOSE:600MG EVERY  6 MONTHS
     Route: 042
     Dates: start: 20180309
  3. LISINOPRIL. [Concomitant]
     Active Substance: LISINOPRIL
     Dates: start: 20180409
  4. ZANAFLEX [Suspect]
     Active Substance: TIZANIDINE HYDROCHLORIDE
     Dates: start: 20180409
  5. LEVOTHROXIN [Concomitant]
     Dates: start: 20180703
  6. VITAMIN D [Concomitant]
     Active Substance: CHOLECALCIFEROL
     Dates: start: 20180409
  7. BACLOFEN. [Concomitant]
     Active Substance: BACLOFEN
     Dates: start: 20180409
  8. OCREVUS [Concomitant]
     Active Substance: OCRELIZUMAB
     Dates: start: 20180409

REACTIONS (1)
  - Atrial fibrillation [None]
